FAERS Safety Report 8010470-8 (Version None)
Quarter: 2011Q4

REPORT INFORMATION
  Report Type: 
  Country: None (occurrence: None)
  Receive Date: 20111223
  Receipt Date: 20111223
  Transmission Date: 20120403
  Serious: Yes (Life-Threatening, Hospitalization, Disabling, Other)
  Sender: FDA-Public Use
  Company Number: None

PATIENT
  Age: 40 Year
  Sex: Male
  Weight: 133.8111 kg

DRUGS (5)
  1. KLONOPIN [Concomitant]
  2. PAXIL [Concomitant]
  3. RISPERDAL [Suspect]
     Indication: SEDATIVE THERAPY
     Dosage: 3 MG A DAY 047
     Route: 048
     Dates: start: 19960111, end: 19960210
  4. SERZONE [Concomitant]
  5. TYLENOL SLEEP AID [Concomitant]

REACTIONS (8)
  - DRUG WITHDRAWAL SYNDROME [None]
  - DISSOCIATION [None]
  - APHASIA [None]
  - HAEMORRHAGE [None]
  - DIABETES MELLITUS [None]
  - WEIGHT INCREASED [None]
  - VISUAL ACUITY REDUCED [None]
  - PERSONALITY CHANGE [None]
